FAERS Safety Report 5838960-4 (Version None)
Quarter: 2008Q3

REPORT INFORMATION
  Report Type: 
  Country: None (occurrence: None)
  Receive Date: 20080808
  Receipt Date: 20080806
  Transmission Date: 20090109
  Serious: Yes (Hospitalization)
  Sender: FDA-Public Use
  Company Number: US-ASTRAZENECA-2008UW10881

PATIENT
  Age: 432 Month
  Sex: Female
  Weight: 124.3 kg

DRUGS (13)
  1. SEROQUEL [Suspect]
     Indication: PSYCHOTIC DISORDER
     Route: 048
     Dates: start: 20020204, end: 20030614
  2. SEROQUEL [Suspect]
     Indication: DEPRESSION
     Route: 048
     Dates: start: 20020204, end: 20030614
  3. SEROQUEL [Suspect]
     Route: 048
     Dates: start: 20020204, end: 20030614
  4. SEROQUEL [Suspect]
     Route: 048
     Dates: start: 20020204, end: 20030614
  5. ABILIFY [Concomitant]
     Dates: start: 20030114, end: 20030508
  6. CLOZARIL [Concomitant]
     Dates: start: 20040428
  7. GEODON [Concomitant]
     Dates: start: 20020123
  8. RISPERDAL [Concomitant]
     Dates: start: 20010601, end: 20031029
  9. RISPERDAL [Concomitant]
     Dates: start: 20031113, end: 20040331
  10. RISPERDAL [Concomitant]
     Dates: start: 20040126, end: 20040225
  11. ZYPREXA [Concomitant]
     Dates: start: 20010101, end: 20030101
  12. ZYPREXA [Concomitant]
     Dates: start: 20010101, end: 20030101
  13. ZYPREXA [Concomitant]
     Dates: start: 20010101, end: 20030101

REACTIONS (6)
  - CELLULITIS [None]
  - FASCIITIS [None]
  - HYPERTENSION [None]
  - NEUROPATHY PERIPHERAL [None]
  - OBESITY [None]
  - TYPE 2 DIABETES MELLITUS [None]
